FAERS Safety Report 14601864 (Version 2)
Quarter: 2018Q1

REPORT INFORMATION
  Report Type: Spontaneous
  Country: US (occurrence: US)
  Receive Date: 20180306
  Receipt Date: 20180323
  Transmission Date: 20180509
  Serious: Yes (Hospitalization, Disabling, Other)
  Sender: FDA-Public Use
  Company Number: US-ROCHE-2078226

PATIENT
  Age: 7 Year
  Sex: Female
  Weight: 29.06 kg

DRUGS (2)
  1. TAMIFLU [Suspect]
     Active Substance: OSELTAMIVIR PHOSPHATE
     Indication: INFLUENZA
     Route: 048
     Dates: start: 20180213, end: 20180217
  2. TAMIFLU [Suspect]
     Active Substance: OSELTAMIVIR PHOSPHATE
     Indication: ANTIVIRAL PROPHYLAXIS

REACTIONS (12)
  - Pyrexia [Recovered/Resolved]
  - Gait inability [Recovered/Resolved]
  - Musculoskeletal stiffness [Recovered/Resolved]
  - Polymyositis [Unknown]
  - Myositis [Recovered/Resolved]
  - Hypoaesthesia [Not Recovered/Not Resolved]
  - Rash [Unknown]
  - Malaise [Unknown]
  - Blood creatine phosphokinase increased [Not Recovered/Not Resolved]
  - Fall [Unknown]
  - Ill-defined disorder [Recovered/Resolved]
  - Gait disturbance [Recovered/Resolved]

NARRATIVE: CASE EVENT DATE: 20180214
